FAERS Safety Report 8332940-5 (Version None)
Quarter: 2012Q2

REPORT INFORMATION
  Report Type: 
  Country: None (occurrence: None)
  Receive Date: 20120503
  Receipt Date: 20120501
  Transmission Date: 20120825
  Serious: Yes (Hospitalization)
  Sender: FDA-Public Use
  Company Number: GB-AMGEN-GBRCT2012005545

PATIENT
  Age: 37 Year
  Sex: Male

DRUGS (3)
  1. CALCIUM CARBONATE [Concomitant]
     Dosage: UNK
     Route: 048
     Dates: start: 20100618
  2. DENOSUMAB [Suspect]
     Indication: BONE GIANT CELL TUMOUR
     Dosage: 120 MG, QMO
     Route: 058
     Dates: start: 20100618, end: 20111205
  3. FENTANYL [Concomitant]
     Indication: PAIN
     Route: 042

REACTIONS (1)
  - BONE GIANT CELL TUMOUR [None]
